FAERS Safety Report 4696894-5 (Version None)
Quarter: 2005Q2

REPORT INFORMATION
  Report Type: 
  Country: None (occurrence: None)
  Receive Date: 20050124
  Receipt Date: 20050124
  Transmission Date: 20051028
  Serious: Yes (Other)
  Sender: FDA-Public Use
  Company Number: None

PATIENT
  Sex: Female
  Weight: 126.1 kg

DRUGS (7)
  1. GLUCOTROL [Suspect]
     Indication: DIABETES MELLITUS NON-INSULIN-DEPENDENT
     Dosage: 10 MG 1/2 TAB BID
  2. MONOPRIL [Concomitant]
  3. NORVASC [Concomitant]
  4. LASIX [Concomitant]
  5. NITRO [Concomitant]
  6. ASPIRIN [Concomitant]
  7. PREDNISONE TAB [Concomitant]

REACTIONS (3)
  - DRUG INTOLERANCE [None]
  - HEADACHE [None]
  - NAUSEA [None]
